FAERS Safety Report 5332237-1 (Version None)
Quarter: 2007Q2

REPORT INFORMATION
  Report Type: 
  Country: None (occurrence: None)
  Receive Date: 20070523
  Receipt Date: 20070518
  Transmission Date: 20071010
  Serious: Yes (Death)
  Sender: FDA-Public Use
  Company Number: JP-ASTRAZENECA-2007AP02938

PATIENT
  Age: 60 Year
  Sex: Male

DRUGS (3)
  1. CRESTOR [Suspect]
     Indication: HYPERCHOLESTEROLAEMIA
     Route: 048
     Dates: start: 20070309, end: 20070416
  2. EUGLUCON [Concomitant]
     Route: 048
     Dates: start: 20050101, end: 20070416
  3. BASEN OD [Concomitant]
     Route: 048
     Dates: start: 20050101, end: 20070416

REACTIONS (1)
  - CARDIAC FAILURE [None]
